FAERS Safety Report 4325428-X (Version None)
Quarter: 2004Q1

REPORT INFORMATION
  Report Type: 
  Country: None (occurrence: None)
  Receive Date: 20040329
  Receipt Date: 20040316
  Transmission Date: 20041129
  Serious: Yes (Hospitalization)
  Sender: FDA-Public Use
  Company Number: PHNR2004AU00773

PATIENT
  Age: 30 Year
  Sex: Female

DRUGS (3)
  1. SYNTOCINON [Suspect]
     Dosage: 5 U BOLUS + 30 U INFUSION
     Route: 042
     Dates: start: 20040229
  2. PROSTAGLANDIN E2 [Concomitant]
     Indication: LABOUR INDUCTION
     Dosage: 1 MG + 2 MG
     Dates: start: 20040228
  3. ANAESTHETICS, GENERAL [Concomitant]

REACTIONS (12)
  - BLOOD BILIRUBIN INCREASED [None]
  - COAGULOPATHY [None]
  - DISSEMINATED INTRAVASCULAR COAGULATION [None]
  - DRUG INEFFECTIVE [None]
  - HAEMOGLOBIN DECREASED [None]
  - INCISION SITE COMPLICATION [None]
  - LIVER FUNCTION TEST ABNORMAL [None]
  - PLATELET COUNT DECREASED [None]
  - POSTPARTUM HAEMORRHAGE [None]
  - PROCEDURAL COMPLICATION [None]
  - THERAPEUTIC PROCEDURE [None]
  - VAGINAL HAEMORRHAGE [None]
